FAERS Safety Report 5463967-9 (Version None)
Quarter: 2007Q3

REPORT INFORMATION
  Report Type: 
  Country: None (occurrence: None)
  Receive Date: 20070921
  Receipt Date: 20070913
  Transmission Date: 20080115
  Serious: Yes (Other)
  Sender: FDA-Public Use
  Company Number: PHBS2007BR15132

PATIENT
  Sex: Male

DRUGS (1)
  1. ZELNORM [Suspect]
     Indication: COLITIS
     Dosage: 6 MG, QD
     Route: 048

REACTIONS (1)
  - DIARRHOEA HAEMORRHAGIC [None]
